FAERS Safety Report 10184184 (Version 2)
Quarter: 2014Q2

REPORT INFORMATION
  Report Type: Spontaneous
  Country: US (occurrence: US)
  Receive Date: 20140520
  Receipt Date: 20140520
  Transmission Date: 20141212
  Serious: Yes (Other)
  Sender: FDA-Public Use
  Company Number: US-BANPHARM-20142692

PATIENT
  Sex: Female

DRUGS (2)
  1. ALEVE LIQUID GELS 220 MG [Suspect]
     Route: 048
  2. ALEVE LIQUID GELS 220 MG [Suspect]
     Route: 048

REACTIONS (2)
  - Cardiac flutter [Unknown]
  - Arrhythmia [Unknown]
